FAERS Safety Report 6782858-4 (Version None)
Quarter: 2010Q2

REPORT INFORMATION
  Report Type: 
  Country: None (occurrence: None)
  Receive Date: 20100617
  Receipt Date: 20100611
  Transmission Date: 20101027
  Serious: Yes (Hospitalization, Other)
  Sender: FDA-Public Use
  Company Number: 1000014145

PATIENT
  Age: 81 Year
  Sex: Male

DRUGS (3)
  1. BYSTOLIC [Suspect]
     Indication: ATRIAL FLUTTER
     Dosage: 2.5 MG (2.5 MG, 1 IN 1D), ORAL
     Route: 048
     Dates: start: 20100509, end: 20100510
  2. MULTAQ [Suspect]
     Indication: ATRIAL FLUTTER
     Dosage: (400MG, ONCE) ORAL
     Route: 048
     Dates: start: 20100509, end: 20100509
  3. CARDIZEM [Concomitant]
     Indication: ATRIAL FLUTTER
     Dates: start: 20090501

REACTIONS (3)
  - CARDIAC ARREST [None]
  - CONVULSION [None]
  - RESPIRATORY ARREST [None]
